FAERS Safety Report 5391408-9 (Version None)
Quarter: 2007Q3

REPORT INFORMATION
  Report Type: 
  Country: None (occurrence: None)
  Receive Date: 20070719
  Receipt Date: 20070710
  Transmission Date: 20080115
  Serious: Yes (Disabling)
  Sender: FDA-Public Use
  Company Number: PHFR2007GB02108

PATIENT
  Age: 86 Year
  Sex: Female
  Weight: 61.59 kg

DRUGS (5)
  1. FAMVIR [Suspect]
     Indication: HERPES ZOSTER
     Dosage: 750MG
     Route: 048
     Dates: start: 20070625, end: 20070625
  2. ASPIRIN [Concomitant]
     Indication: CARDIOVASCULAR EVENT PROPHYLAXIS
     Dosage: 75 MG, QD
     Route: 048
     Dates: start: 20051003
  3. ATORVASTATIN CALCIUM [Concomitant]
     Indication: HYPERLIPIDAEMIA
     Dosage: 10 MG, QD
     Route: 048
     Dates: start: 20040719
  4. BENDROFLUMETHIAZIDE [Concomitant]
     Indication: HYPERTENSION
     Dosage: 2.5 MG, QD
     Route: 048
     Dates: start: 20050726
  5. BETAHISTINE [Concomitant]
     Indication: VERTIGO
     Dosage: 8 MG, QID
     Route: 048
     Dates: start: 20041202

REACTIONS (4)
  - DIZZINESS [None]
  - HEADACHE [None]
  - LOSS OF CONSCIOUSNESS [None]
  - NAUSEA [None]
